FAERS Safety Report 25853488 (Version 1)
Quarter: 2025Q3

REPORT INFORMATION
  Report Type: Spontaneous
  Country: US (occurrence: US)
  Receive Date: 20250926
  Receipt Date: 20250926
  Transmission Date: 20251021
  Serious: No
  Sender: SANDOZ
  Company Number: US-SANDOZ-SDZ2025US068879

PATIENT
  Age: 6 Year
  Sex: Female

DRUGS (2)
  1. HYRIMOZ [Suspect]
     Active Substance: ADALIMUMAB-ADAZ
     Indication: Juvenile idiopathic arthritis
     Dosage: 20 MG, Q2W HYRIMOZ 20MG/0.2ML
     Route: 058
     Dates: start: 20250703, end: 20250917
  2. HYRIMOZ [Suspect]
     Active Substance: ADALIMUMAB-ADAZ
     Indication: Juvenile idiopathic arthritis
     Dosage: 20 MG, Q2W HYRIMOZ 20MG/0.2ML
     Route: 058
     Dates: start: 20250703, end: 20250917

REACTIONS (2)
  - Post-traumatic stress disorder [Unknown]
  - Injection site pain [Unknown]

NARRATIVE: CASE EVENT DATE: 20250101
